FAERS Safety Report 6181313-2 (Version None)
Quarter: 2009Q2

REPORT INFORMATION
  Report Type: 
  Country: None (occurrence: None)
  Receive Date: 20090506
  Receipt Date: 20090427
  Transmission Date: 20091009
  Serious: Yes (Other)
  Sender: FDA-Public Use
  Company Number: JP-BRISTOL-MYERS SQUIBB COMPANY-14609408

PATIENT
  Age: 68 Year
  Sex: Male
  Weight: 52 kg

DRUGS (12)
  1. ABILIFY [Suspect]
     Indication: SCHIZOPHRENIA
     Dosage: 26MAR08-09APR08=6MG, 15DAYS 10APR-22JUL08=12MG,104DAYS 23JUL08-ONGOING=18MG
     Route: 048
     Dates: start: 20080326
  2. RISPERIDONE [Concomitant]
     Dates: start: 20071003, end: 20080527
  3. BROTIZOLAM [Concomitant]
     Dosage: FORMULATION - TABS
  4. SODIUM PICOSULFATE [Concomitant]
     Dosage: FORMULATION - LIQUID
  5. RETINOL [Concomitant]
     Dosage: FORMULATION - CREAM
  6. SANCOBA [Concomitant]
     Dosage: FORMULATION - OPTHALMIC SOLUTION
  7. NITROGLYCERIN [Concomitant]
     Dates: start: 20061031
  8. ASPIRIN [Concomitant]
     Dosage: FORMULATION - TABS
     Dates: start: 20061206
  9. PASETOCIN [Concomitant]
     Dates: start: 20080524, end: 20080625
  10. TOMIRON [Concomitant]
     Dates: start: 20081027, end: 20081121
  11. GARASONE [Concomitant]
     Dosage: FORMULATION - CREAM
     Dates: start: 20081117, end: 20081121
  12. LOXOPROFEN SODIUM [Concomitant]
     Dosage: FORMULATION - TABS
     Dates: start: 20081203, end: 20081204

REACTIONS (2)
  - SPINAL COMPRESSION FRACTURE [None]
  - WEIGHT DECREASED [None]
